FAERS Safety Report 9786529 (Version 2)
Quarter: 2014Q1

REPORT INFORMATION
  Report Type: Spontaneous
  Country: US (occurrence: US)
  Receive Date: 20131227
  Receipt Date: 20140211
  Transmission Date: 20141002
  Serious: Yes (Death)
  Sender: FDA-Public Use
  Company Number: US-BAYER-2013-158541

PATIENT
  Age: 67 Year
  Sex: Male
  Weight: 62.6 kg

DRUGS (3)
  1. XOFIGO [Suspect]
     Indication: PROSTATE CANCER
     Dosage: 1.35 MCLI/KG MONTHLY
     Route: 042
     Dates: start: 20130910, end: 20130910
  2. XOFIGO [Suspect]
     Indication: METASTASES TO BONE
     Dosage: 1.35 MCLI/KG MONTHLY
     Route: 042
     Dates: start: 20131016, end: 20131016
  3. XOFIGO [Suspect]
     Indication: PROSTATE CANCER
     Dosage: 1.35 MCLI/KG MONTHLY
     Route: 042
     Dates: start: 20131119, end: 20131119

REACTIONS (1)
  - Death [Fatal]
